FAERS Safety Report 9900742 (Version 1)
Quarter: 2014Q1

REPORT INFORMATION
  Report Type: Spontaneous
  Country: US (occurrence: US)
  Receive Date: 20140217
  Receipt Date: 20140217
  Transmission Date: 20141002
  Serious: No
  Sender: FDA-Public Use
  Company Number: US-009507513-1402USA004668

PATIENT
  Sex: Female
  Weight: 70.3 kg

DRUGS (4)
  1. ZOCOR [Suspect]
     Indication: BLOOD CHOLESTEROL INCREASED
     Route: 048
  2. CRESTOR [Suspect]
     Indication: BLOOD CHOLESTEROL INCREASED
  3. MEVACOR TABLET [Suspect]
     Indication: BLOOD CHOLESTEROL INCREASED
     Route: 048
  4. COUMADIN [Concomitant]
     Dosage: UNK
     Dates: start: 199301

REACTIONS (1)
  - Drug ineffective [Unknown]
